FAERS Safety Report 5532320-1 (Version None)
Quarter: 2007Q4

REPORT INFORMATION
  Report Type: 
  Country: None (occurrence: None)
  Receive Date: 20071203
  Receipt Date: 20071121
  Transmission Date: 20080405
  Serious: Yes (Hospitalization, Other)
  Sender: FDA-Public Use
  Company Number: GB-ELI_LILLY_AND_COMPANY-GB200709003714

PATIENT
  Sex: Female

DRUGS (4)
  1. CYMBALTA [Suspect]
     Indication: DEPRESSION
     Dosage: 60 MG, UNKNOWN
     Route: 048
     Dates: start: 20070101, end: 20070901
  2. PROPRANOLOL [Concomitant]
     Indication: ANXIETY
     Dosage: 40 MG, 2/D
     Route: 048
  3. DIAZEPAM [Concomitant]
     Dosage: 2 MG, AS NEEDED
     Route: 048
  4. TRAZODONE HCL [Concomitant]
     Indication: DEPRESSION
     Dosage: UNK, UNKNOWN
     Route: 065

REACTIONS (1)
  - MANIA [None]
